FAERS Safety Report 5755374-6 (Version None)
Quarter: 2008Q2

REPORT INFORMATION
  Report Type: 
  Country: None (occurrence: None)
  Receive Date: 20080529
  Receipt Date: 20080529
  Transmission Date: 20081010
  Serious: No
  Sender: FDA-Public Use
  Company Number: None

PATIENT
  Age: 28 Year
  Sex: Female
  Weight: 56.6996 kg

DRUGS (4)
  1. SEASONIQUE [Suspect]
     Indication: CONTRACEPTION
     Dosage: DAILY PO
     Route: 048
     Dates: start: 20080301, end: 20080422
  2. SEASONIQUE [Suspect]
     Indication: MENSTRUATION IRREGULAR
     Dosage: DAILY PO
     Route: 048
     Dates: start: 20080301, end: 20080422
  3. FLUVOXAMINE MALEATE [Concomitant]
  4. CYMBALTA [Concomitant]

REACTIONS (2)
  - HEART RATE INCREASED [None]
  - HYPERTENSION [None]
